FAERS Safety Report 18339097 (Version 1)
Quarter: 2020Q4

REPORT INFORMATION
  Report Type: Spontaneous
  Country: US (occurrence: US)
  Receive Date: 20201002
  Receipt Date: 20201002
  Transmission Date: 20210113
  Serious: No
  Sender: FDA-Public Use
  Company Number: US-PERRIGO-20US007793

PATIENT
  Age: 53 Year
  Sex: Female
  Weight: 77.1 kg

DRUGS (7)
  1. CLOZAPINE. [Concomitant]
     Active Substance: CLOZAPINE
     Indication: DEPRESSION
     Dosage: UNK
     Route: 065
  2. NICOTINE POLACRILEX [Suspect]
     Active Substance: NICOTINE
     Dosage: 2 MG, UP TO 5 TIMES DAILY, PRN
     Route: 002
     Dates: start: 20200821, end: 20200901
  3. LORATADINE. [Concomitant]
     Active Substance: LORATADINE
     Indication: PERENNIAL ALLERGY
     Dosage: UNK
     Route: 065
  4. NICOTINE POLACRILEX [Suspect]
     Active Substance: NICOTINE
     Indication: SMOKING CESSATION THERAPY
     Dosage: 2 MG, EVERY 1 TO 2 HOURS
     Route: 002
     Dates: start: 20200521, end: 20200526
  5. PROTONIX [Concomitant]
     Active Substance: PANTOPRAZOLE SODIUM
     Indication: GASTROOESOPHAGEAL REFLUX DISEASE
     Dosage: UNK
     Route: 065
  6. ADVAIR HFA [Concomitant]
     Active Substance: FLUTICASONE PROPIONATE\SALMETEROL XINAFOATE
     Indication: CHRONIC OBSTRUCTIVE PULMONARY DISEASE
     Dosage: UNK
     Route: 055
     Dates: start: 2012
  7. METOPROLOL. [Concomitant]
     Active Substance: METOPROLOL
     Indication: HYPERTENSION
     Dosage: UNK
     Route: 065

REACTIONS (7)
  - Abdominal pain upper [Recovering/Resolving]
  - Oral discomfort [Recovering/Resolving]
  - Wrong technique in product usage process [Recovered/Resolved]
  - Flatulence [Recovering/Resolving]
  - Gastrooesophageal reflux disease [Recovering/Resolving]
  - Gingival discomfort [Recovering/Resolving]
  - Abdominal distension [Recovering/Resolving]

NARRATIVE: CASE EVENT DATE: 20200521
